FAERS Safety Report 9173833 (Version 2)
Quarter: 2013Q2

REPORT INFORMATION
  Report Type: Spontaneous
  Country: US (occurrence: US)
  Receive Date: 20130320
  Receipt Date: 20130410
  Transmission Date: 20140414
  Serious: No
  Sender: FDA-Public Use
  Company Number: US-BAYER-2013-034558

PATIENT
  Age: 74 Year
  Sex: Female

DRUGS (2)
  1. MAGNEVIST [Suspect]
     Indication: NUCLEAR MAGNETIC RESONANCE IMAGING BRAIN
     Dosage: 10CC
     Dates: start: 20130315
  2. MAGNEVIST [Suspect]
     Indication: BRAIN NEOPLASM

REACTIONS (1)
  - Headache [Not Recovered/Not Resolved]
